FAERS Safety Report 14210563 (Version 1)
Quarter: 2017Q4

REPORT INFORMATION
  Report Type: Spontaneous
  Country: CH (occurrence: CH)
  Receive Date: 20171121
  Receipt Date: 20171121
  Transmission Date: 20180321
  Serious: Yes (Other)
  Sender: FDA-Public Use
  Company Number: CH-AMGEN-CHESP2017173178

PATIENT
  Age: 18 Year
  Sex: Female

DRUGS (1)
  1. XGEVA [Suspect]
     Active Substance: DENOSUMAB
     Indication: BONE GIANT CELL TUMOUR BENIGN
     Dosage: 120 MG, Q4WK
     Route: 065
     Dates: start: 201305

REACTIONS (4)
  - Pain [Recovered/Resolved]
  - Post procedural infection [Unknown]
  - Osteonecrosis of jaw [Unknown]
  - Off label use [Unknown]

NARRATIVE: CASE EVENT DATE: 201305
